FAERS Safety Report 23483197 (Version 1)
Quarter: 2024Q1

REPORT INFORMATION
  Report Type: Spontaneous
  Country: CN (occurrence: CN)
  Receive Date: 20240205
  Receipt Date: 20240205
  Transmission Date: 20240409
  Serious: Yes (Hospitalization, Other)
  Sender: FDA-Public Use
  Company Number: CN-SANDOZ-SDZ2024CN011387

PATIENT
  Age: 72 Year
  Sex: Male

DRUGS (5)
  1. DOXOFYLLINE [Suspect]
     Active Substance: DOXOFYLLINE
     Indication: Pneumonia
     Dosage: 0.2 G, BID
     Route: 065
     Dates: start: 202401
  2. ESOMEPRAZOLE [Suspect]
     Active Substance: ESOMEPRAZOLE
     Indication: Pneumonia
     Dosage: 20 MG, QD
     Route: 065
     Dates: start: 20240122, end: 20240122
  3. MOXIFLOXACIN [Suspect]
     Active Substance: MOXIFLOXACIN
     Indication: Pneumonia
     Dosage: 0.4 G, QD
     Route: 065
     Dates: start: 202401
  4. VORICONAZOLE [Suspect]
     Active Substance: VORICONAZOLE
     Indication: Pneumonia
     Dosage: 200 MG, QD
     Route: 048
     Dates: start: 20240122, end: 20240122
  5. VORICONAZOLE [Suspect]
     Active Substance: VORICONAZOLE
     Dosage: 0.2 G, Q12H
     Route: 065
     Dates: start: 202401

REACTIONS (2)
  - Rhabdomyolysis [Unknown]
  - Wheezing [Unknown]

NARRATIVE: CASE EVENT DATE: 20240127
